FAERS Safety Report 19588939 (Version 5)
Quarter: 2022Q4

REPORT INFORMATION
  Report Type: Spontaneous
  Country: JP (occurrence: None)
  Receive Date: 20210721
  Receipt Date: 20221118
  Transmission Date: 20230113
  Serious: Yes (Death, Hospitalization)
  Sender: FDA-Public Use
  Company Number: 2021A628628

PATIENT
  Age: 16763 Day
  Sex: Male
  Weight: 65 kg

DRUGS (6)
  1. LYNPARZA [Suspect]
     Active Substance: OLAPARIB
     Indication: Prostate cancer
     Route: 048
     Dates: start: 20210210, end: 20210712
  2. OXYCONTIN [Concomitant]
     Active Substance: OXYCODONE HYDROCHLORIDE
     Indication: Cancer pain
     Dosage: DOSE UNKNOWN
     Route: 065
     Dates: end: 20210707
  3. FENTANYL [Concomitant]
     Active Substance: FENTANYL
     Indication: Cancer pain
     Route: 062
     Dates: start: 20210708, end: 20210712
  4. SYMPROIC [Concomitant]
     Active Substance: NALDEMEDINE
     Indication: Constipation
     Route: 048
     Dates: start: 20210703, end: 20210712
  5. PREDONINE [Concomitant]
     Active Substance: PREDNISOLONE
     Route: 048
     Dates: start: 202002, end: 20210712
  6. DEGARELIX [Concomitant]
     Active Substance: DEGARELIX
     Indication: Prostate cancer
     Route: 058
     Dates: start: 201812, end: 20210712

REACTIONS (6)
  - Cerebrovascular accident [Fatal]
  - Pulmonary embolism [Fatal]
  - Cerebral haemorrhage [Fatal]
  - Cerebral infarction [Fatal]
  - Prostate cancer [Fatal]
  - Anaemia [Not Recovered/Not Resolved]

NARRATIVE: CASE EVENT DATE: 20210222
